FAERS Safety Report 25050212 (Version 2)
Quarter: 2025Q2

REPORT INFORMATION
  Report Type: Spontaneous
  Country: IT (occurrence: IT)
  Receive Date: 20250307
  Receipt Date: 20250403
  Transmission Date: 20250717
  Serious: Yes (Other)
  Sender: AUROBINDO
  Company Number: IT-BRISTOL-MYERS SQUIBB COMPANY-2023-169820

PATIENT
  Age: 83 Year
  Sex: Male

DRUGS (3)
  1. LENALIDOMIDE [Suspect]
     Active Substance: LENALIDOMIDE
     Indication: Plasma cell myeloma
     Route: 065
  2. DARATUMUMAB [Suspect]
     Active Substance: DARATUMUMAB
     Indication: Plasma cell myeloma
     Route: 065
  3. DEXAMETHASONE [Suspect]
     Active Substance: DEXAMETHASONE
     Indication: Plasma cell myeloma
     Route: 065

REACTIONS (7)
  - Glaucoma [Not Recovered/Not Resolved]
  - Blood creatinine increased [Not Recovered/Not Resolved]
  - Asthenia [Not Recovered/Not Resolved]
  - Balanoposthitis [Not Recovered/Not Resolved]
  - Acquired phimosis [Not Recovered/Not Resolved]
  - Rash [Recovered/Resolved]
  - Animal bite [Recovered/Resolved]

NARRATIVE: CASE EVENT DATE: 20231011
